FAERS Safety Report 4943620-8 (Version None)
Quarter: 2006Q1

REPORT INFORMATION
  Report Type: 
  Country: None (occurrence: None)
  Receive Date: 20060310
  Receipt Date: 20060223
  Transmission Date: 20060701
  Serious: Yes (Life-Threatening, Hospitalization, Disabling)
  Sender: FDA-Public Use
  Company Number: B0389329A

PATIENT
  Age: 10 Year
  Sex: Male
  Weight: 43.3185 kg

DRUGS (2)
  1. FLUTICASONE PROPIONATE [Suspect]
     Indication: ASTHMA
     Dosage: 1000 MCG/ PER DAY/ INHALED
     Route: 055
  2. PREDNISOLONE [Concomitant]

REACTIONS (3)
  - ADRENAL SUPPRESSION [None]
  - CIRCULATORY COLLAPSE [None]
  - HYPOTENSION [None]
